FAERS Safety Report 21009809 (Version 1)
Quarter: 2022Q2

REPORT INFORMATION
  Report Type: Spontaneous
  Country: US (occurrence: None)
  Receive Date: 20220626
  Receipt Date: 20220626
  Transmission Date: 20220721
  Serious: Yes (Other)
  Sender: FDA-Public Use
  Company Number: None

PATIENT
  Age: 30 Year
  Sex: Female
  Weight: 63 kg

DRUGS (4)
  1. DEXTROAMPHET SACCHARAT, AMPHET ASPARTATE, DEXTROAMPHET SULFATE AND AMP [Suspect]
     Active Substance: AMPHETAMINE ASPARTATE\AMPHETAMINE SULFATE\DEXTROAMPHETAMINE SACCHARATE\DEXTROAMPHETAMINE SULFATE
     Indication: Attention deficit hyperactivity disorder
     Dosage: OTHER QUANTITY : 60 TABLET(S)?FREQUENCY : TWICE A DAY ?
     Route: 048
     Dates: start: 20220624, end: 20220626
  2. ADDERALL [Concomitant]
     Active Substance: AMPHETAMINE ASPARTATE\AMPHETAMINE SULFATE\DEXTROAMPHETAMINE SACCHARATE\DEXTROAMPHETAMINE SULFATE
  3. VITAMIN D [Concomitant]
     Active Substance: VITAMIN D NOS
  4. IBUPROFEN [Concomitant]
     Active Substance: IBUPROFEN

REACTIONS (7)
  - Product substitution issue [None]
  - Eye irritation [None]
  - Feeling hot [None]
  - Oropharyngeal discomfort [None]
  - Mobility decreased [None]
  - Asthenopia [None]
  - Impaired driving ability [None]

NARRATIVE: CASE EVENT DATE: 20220624
